FAERS Safety Report 25013624 (Version 1)
Quarter: 2025Q1

REPORT INFORMATION
  Report Type: Spontaneous
  Country: BY (occurrence: BY)
  Receive Date: 20250226
  Receipt Date: 20250226
  Transmission Date: 20250408
  Serious: Yes (Death, Life-Threatening, Hospitalization)
  Sender: JOHNSON AND JOHNSON
  Company Number: BY-JNJFOC-20250260395

PATIENT
  Age: 5 Decade
  Sex: Male
  Weight: 72 kg

DRUGS (7)
  1. SIRTURO [Suspect]
     Active Substance: BEDAQUILINE FUMARATE
     Indication: Tuberculosis
     Dosage: FOR 2 WEEKS
     Route: 048
     Dates: start: 20220929
  2. SIRTURO [Suspect]
     Active Substance: BEDAQUILINE FUMARATE
     Dosage: LAST ADMINISTRATION: 16-MAR-2023
     Route: 048
  3. PRETOMANID [Suspect]
     Active Substance: PRETOMANID
     Indication: Tuberculosis
     Dosage: LAST ADMINISTRATION: 16-MAR-2023
     Route: 065
     Dates: start: 20220929
  4. MOXIFLOXACIN [Suspect]
     Active Substance: MOXIFLOXACIN
     Indication: Tuberculosis
     Dosage: LAST ADMINISTRATION: 18-OCT-2022
     Route: 065
     Dates: start: 20220929
  5. CLOFAZIMINE [Suspect]
     Active Substance: CLOFAZIMINE
     Indication: Tuberculosis
     Dosage: LAST ADMINISTRATION: 16-MAR-2023
     Route: 065
     Dates: start: 20221019
  6. LINEZOLID [Suspect]
     Active Substance: LINEZOLID
     Indication: Tuberculosis
     Dosage: LAST ADMINISTRATION: 16-MAR-2023
     Route: 065
  7. LINEZOLID [Suspect]
     Active Substance: LINEZOLID
     Dosage: FOR 112 DOSES
     Route: 065
     Dates: start: 20220929

REACTIONS (2)
  - HIV infection [Fatal]
  - Seizure [Unknown]

NARRATIVE: CASE EVENT DATE: 20230607
